FAERS Safety Report 14174074 (Version 1)
Quarter: 2017Q4

REPORT INFORMATION
  Report Type: Spontaneous
  Country: US (occurrence: US)
  Receive Date: 20171109
  Receipt Date: 20171109
  Transmission Date: 20180321
  Serious: Yes (Other)
  Sender: FDA-Public Use
  Company Number: US-MALLINCKRODT-T201704434

PATIENT
  Sex: Female
  Weight: 93 kg

DRUGS (1)
  1. H.P. ACTHAR [Suspect]
     Active Substance: CORTICOTROPIN
     Indication: SARCOIDOSIS
     Dosage: 40 UNITS,  EVERY 3 DAYS
     Route: 058
     Dates: start: 20171024

REACTIONS (2)
  - Condition aggravated [Unknown]
  - Sarcoidosis [Unknown]
